FAERS Safety Report 14603386 (Version 1)
Quarter: 2018Q1

REPORT INFORMATION
  Report Type: Spontaneous
  Country: ZA (occurrence: ZA)
  Receive Date: 20180305
  Receipt Date: 20180305
  Transmission Date: 20180509
  Serious: Yes (Life-Threatening, Hospitalization, Disabling)
  Sender: FDA-Public Use
  Company Number: None

PATIENT
  Age: 62 Year
  Sex: Female

DRUGS (1)
  1. OMNIPAQUE [Suspect]
     Active Substance: IOHEXOL
     Indication: COMPUTERISED TOMOGRAM
     Route: 042
     Dates: start: 20180104, end: 20180104

REACTIONS (6)
  - Facial paralysis [None]
  - Cardiac arrest [None]
  - Contrast media allergy [None]
  - Rib fracture [None]
  - Pneumothorax [None]
  - Anaphylactic shock [None]

NARRATIVE: CASE EVENT DATE: 20180104
